FAERS Safety Report 24030271 (Version 1)
Quarter: 2024Q2

REPORT INFORMATION
  Report Type: Spontaneous
  Country: GB (occurrence: None)
  Receive Date: 20240628
  Receipt Date: 20240628
  Transmission Date: 20240715
  Serious: Yes (Other)
  Sender: FDA-Public Use
  Company Number: 2024A144115

PATIENT
  Age: 67 Year
  Sex: Female
  Weight: 115 kg

DRUGS (24)
  1. ANDEXANET ALFA [Suspect]
     Active Substance: ANDEXANET ALFA
     Indication: Gastrointestinal haemorrhage
     Dosage: HIGH DOSE REGIMEN (HIGH DOSE BOLUS OF 800MG OVER 30 MINUTES FOLLOWED BY CONTINUOUS INFUSION OF 9...
     Dates: start: 20230807, end: 20230807
  2. AMLODIPINE [Concomitant]
     Active Substance: AMLODIPINE BESYLATE
  3. AMOXICILLIN TRIHYDRATE [Concomitant]
     Active Substance: AMOXICILLIN
  4. APIXABAN [Concomitant]
     Active Substance: APIXABAN
  5. ASPIRIN [Concomitant]
     Active Substance: ASPIRIN
  6. CEPHALEXIN [Concomitant]
     Active Substance: CEPHALEXIN
  7. CIPROFLOXACIN [Concomitant]
     Active Substance: CIPROFLOXACIN
  8. CLOPIDOGREL [Concomitant]
     Active Substance: CLOPIDOGREL BISULFATE
  9. AMOXICILLIN\CLAVULANATE POTASSIUM [Concomitant]
     Active Substance: AMOXICILLIN\CLAVULANATE POTASSIUM
  10. CYCLIZINE [Concomitant]
     Active Substance: CYCLIZINE
  11. DALTEPARIN [Concomitant]
     Active Substance: DALTEPARIN
  12. FUROSEMIDE [Concomitant]
     Active Substance: FUROSEMIDE
  13. LACTULOSE [Concomitant]
     Active Substance: LACTULOSE
  14. LANSOPRAZOLE [Concomitant]
     Active Substance: LANSOPRAZOLE
  15. POLYETHYLENE GLYCOLS [Concomitant]
     Active Substance: POLYETHYLENE GLYCOLS
  16. METRONIDAZOLE [Concomitant]
     Active Substance: METRONIDAZOLE
  17. METOCLOPRAMIDE [Concomitant]
     Active Substance: METOCLOPRAMIDE
  18. MORPHINE [Concomitant]
     Active Substance: MORPHINE
  19. OMEPRAZOLE [Concomitant]
     Active Substance: OMEPRAZOLE
  20. ACETAMINOPHEN [Concomitant]
     Active Substance: ACETAMINOPHEN
  21. SENNA [Concomitant]
     Active Substance: SENNA LEAF\SENNOSIDES\SENNOSIDES A AND B
  22. SERTRALINE [Concomitant]
     Active Substance: SERTRALINE HYDROCHLORIDE
  23. SIMVASTATIN [Concomitant]
     Active Substance: SIMVASTATIN
  24. TERLIPRESSIN [Concomitant]
     Active Substance: TERLIPRESSIN

REACTIONS (1)
  - Facial paralysis [Unknown]

NARRATIVE: CASE EVENT DATE: 20230807
